FAERS Safety Report 9114473 (Version 1)
Quarter: 2013Q1

REPORT INFORMATION
  Report Type: Spontaneous
  Country: US (occurrence: US)
  Receive Date: 20130208
  Receipt Date: 20130208
  Transmission Date: 20140127
  Serious: Yes (Other)
  Sender: FDA-Public Use
  Company Number: CHPA2013US001911

PATIENT
  Age: 43 Year
  Sex: Male

DRUGS (4)
  1. TRANSDERM SCOP [Suspect]
     Indication: MOTION SICKNESS
     Dosage: UNK, UNK
     Route: 062
  2. FLEXERIL [Concomitant]
     Indication: PAIN
     Route: 048
  3. ALEVE [Concomitant]
     Indication: PAIN
     Route: 048
  4. IBUPROFEN [Concomitant]
     Indication: PAIN
     Dosage: 800 MG, UNK
     Route: 048

REACTIONS (5)
  - Dysstasia [Not Recovered/Not Resolved]
  - Malaise [Not Recovered/Not Resolved]
  - Vision blurred [Not Recovered/Not Resolved]
  - Nausea [Not Recovered/Not Resolved]
  - Dizziness [Not Recovered/Not Resolved]
